FAERS Safety Report 22847072 (Version 2)
Quarter: 2024Q3

REPORT INFORMATION
  Report Type: Spontaneous
  Country: CA (occurrence: CA)
  Receive Date: 20230822
  Receipt Date: 20240923
  Transmission Date: 20241017
  Serious: Yes (Hospitalization)
  Sender: ROCHE
  Company Number: CA-ROCHE-3406283

PATIENT
  Age: 53 Year
  Sex: Female

DRUGS (1)
  1. SOMATROPIN [Interacting]
     Active Substance: SOMATROPIN
     Indication: Product used for unknown indication
     Route: 065

REACTIONS (6)
  - Drug interaction [Unknown]
  - Drug-induced liver injury [Recovered/Resolved]
  - Hepatic cirrhosis [Recovered/Resolved]
  - Hepatic encephalopathy [Recovered/Resolved]
  - Hepatic necrosis [Recovered/Resolved]
  - Hepatotoxicity [Recovered/Resolved]
